FAERS Safety Report 20937890 (Version 2)
Quarter: 2022Q3

REPORT INFORMATION
  Report Type: Report from Study
  Country: US (occurrence: US)
  Receive Date: 20220609
  Receipt Date: 20220823
  Transmission Date: 20221026
  Serious: Yes (Life-Threatening, Hospitalization, Other)
  Sender: FDA-Public Use
  Company Number: US-BRISTOL-MYERS SQUIBB COMPANY-2022-049125

PATIENT
  Age: 78 Year
  Sex: Male
  Weight: 107.50 kg

DRUGS (5)
  1. POMALYST [Suspect]
     Active Substance: POMALIDOMIDE
     Indication: Plasma cell myeloma
     Dosage: DAYS 1-21 DAYS, EVERY 28 DAYS
     Route: 048
     Dates: start: 202106
  2. POMALYST [Suspect]
     Active Substance: POMALIDOMIDE
     Indication: Thrombocytopenia
  3. POMALYST [Suspect]
     Active Substance: POMALIDOMIDE
     Indication: Aortic thrombosis
  4. POMALYST [Suspect]
     Active Substance: POMALIDOMIDE
     Indication: Aortic embolus
  5. POMALYST [Suspect]
     Active Substance: POMALIDOMIDE
     Indication: Neoplasm malignant

REACTIONS (3)
  - Cerebral disorder [Unknown]
  - Coma [Unknown]
  - Thrombosis [Unknown]

NARRATIVE: CASE EVENT DATE: 20220328
